FAERS Safety Report 15760212 (Version 2)
Quarter: 2021Q1

REPORT INFORMATION
  Report Type: Spontaneous
  Country: CA (occurrence: CA)
  Receive Date: 20181226
  Receipt Date: 20210201
  Transmission Date: 20210419
  Serious: Yes (Other)
  Sender: FDA-Public Use
  Company Number: CA-PFIZER INC-2018526254

PATIENT
  Age: 37 Year
  Sex: Female

DRUGS (2)
  1. METHOTREXATE SODIUM. [Suspect]
     Active Substance: METHOTREXATE SODIUM
     Dosage: 1 DF
     Dates: start: 201809
  2. HUMIRA [Concomitant]
     Active Substance: ADALIMUMAB
     Dosage: UNK UNK, WEEKLY
     Dates: end: 20181215

REACTIONS (4)
  - Haematochezia [Unknown]
  - Abdominal pain [Unknown]
  - Drug ineffective [Unknown]
  - Diarrhoea [Unknown]
